FAERS Safety Report 9672356 (Version 1)
Quarter: 2013Q4

REPORT INFORMATION
  Report Type: Spontaneous
  Country: US (occurrence: US)
  Receive Date: 20131106
  Receipt Date: 20131106
  Transmission Date: 20140711
  Serious: Yes (Other)
  Sender: FDA-Public Use
  Company Number: US-PFIZER INC-2013314407

PATIENT
  Age: 61 Year
  Sex: Male
  Weight: 75.28 kg

DRUGS (4)
  1. LIPITOR [Suspect]
     Indication: BLOOD CHOLESTEROL INCREASED
     Dosage: 10 MG, 1X/DAY
     Route: 048
     Dates: start: 200208, end: 2003
  2. LIPITOR [Suspect]
     Dosage: 10 MG, ALTERNATE DAY
     Route: 048
     Dates: start: 2003
  3. ASPIRIN [Concomitant]
     Dosage: 81 MG, 1X/DAY
  4. PREVACID [Concomitant]
     Dosage: UNK

REACTIONS (1)
  - Cholelithiasis [Unknown]
